FAERS Safety Report 7936443-9 (Version None)
Quarter: 2011Q4

REPORT INFORMATION
  Report Type: 
  Country: None (occurrence: None)
  Receive Date: 20111121
  Receipt Date: 20111114
  Transmission Date: 20120403
  Serious: Yes (Death)
  Sender: FDA-Public Use
  Company Number: 2011PL000160

PATIENT
  Age: 35 Year
  Sex: Female
  Weight: 65 kg

DRUGS (5)
  1. ACEBUTOLOL [Concomitant]
  2. METHYLDOPA [Concomitant]
  3. LABETALOL HYDROCHLORIDE [Suspect]
     Indication: HYPERTENSION
     Dosage: 35 MG; IV
     Route: 042
  4. NICARDIPINE HCL [Suspect]
     Indication: HYPERTENSION
     Dosage: 2 MG; IV
     Route: 042
  5. APRESOLINE [Suspect]
     Indication: HYPERTENSION
     Dosage: 10 MG; IV
     Route: 042

REACTIONS (6)
  - VENTRICULAR FIBRILLATION [None]
  - TACHYCARDIA [None]
  - LOSS OF CONSCIOUSNESS [None]
  - NO THERAPEUTIC RESPONSE [None]
  - PHAEOCHROMOCYTOMA [None]
  - CIRCULATORY COLLAPSE [None]
